FAERS Safety Report 9027224 (Version 2)
Quarter: 2013Q1

REPORT INFORMATION
  Report Type: Spontaneous
  Country: JP (occurrence: JP)
  Receive Date: 20130123
  Receipt Date: 20130206
  Transmission Date: 20140127
  Serious: Yes (Death, Hospitalization, Other)
  Sender: FDA-Public Use
  Company Number: JP-BAXTER-2013BAX003048

PATIENT
  Sex: Male
  Weight: 85 kg

DRUGS (1)
  1. DIANEAL-N PD-4 2.5 PD SOLUTION [Suspect]
     Indication: DIABETIC NEPHROPATHY
     Route: 033
     Dates: end: 20130122

REACTIONS (3)
  - Multi-organ failure [Fatal]
  - Depressed level of consciousness [Unknown]
  - Gangrene [Unknown]
